FAERS Safety Report 22908837 (Version 3)
Quarter: 2023Q4

REPORT INFORMATION
  Report Type: Spontaneous
  Country: JP (occurrence: JP)
  Receive Date: 20230905
  Receipt Date: 20231107
  Transmission Date: 20240109
  Serious: Yes (Hospitalization, Other)
  Sender: FDA-Public Use
  Company Number: JP-MSD-M2023-35468

PATIENT
  Age: 69 Year
  Sex: Female
  Weight: 44 kg

DRUGS (4)
  1. KEYTRUDA [Suspect]
     Active Substance: PEMBROLIZUMAB
     Indication: Uterine cancer
     Dosage: UNK
     Route: 041
     Dates: start: 20230412, end: 20230531
  2. LENVATINIB MESYLATE [Suspect]
     Active Substance: LENVATINIB MESYLATE
     Indication: Uterine cancer
     Dosage: 20 MILLIGRAM, QD
     Route: 048
     Dates: start: 20230412, end: 20230425
  3. LENVATINIB MESYLATE [Suspect]
     Active Substance: LENVATINIB MESYLATE
     Dosage: 14 MILLIGRAM
     Route: 048
     Dates: start: 20230506, end: 20230509
  4. LENVATINIB MESYLATE [Suspect]
     Active Substance: LENVATINIB MESYLATE
     Dosage: 14 MILLIGRAM
     Route: 048
     Dates: start: 20230517, end: 20230531

REACTIONS (12)
  - Small intestinal perforation [Not Recovered/Not Resolved]
  - Vaginal perforation [Unknown]
  - Hypothyroidism [Recovered/Resolved]
  - Fistula [Unknown]
  - Female genital tract fistula [Unknown]
  - Malignant neoplasm progression [Unknown]
  - Eastern Cooperative Oncology Group performance status worsened [Unknown]
  - Fall [Unknown]
  - Weight decreased [Unknown]
  - Dysphonia [Recovering/Resolving]
  - Taste disorder [Unknown]
  - Malaise [Unknown]

NARRATIVE: CASE EVENT DATE: 20230101
